FAERS Safety Report 7831201-8 (Version None)
Quarter: 2011Q4

REPORT INFORMATION
  Report Type: 
  Country: None (occurrence: None)
  Receive Date: 20111021
  Receipt Date: 20111016
  Transmission Date: 20120403
  Serious: Yes (Other)
  Sender: FDA-Public Use
  Company Number: TW-BRISTOL-MYERS SQUIBB COMPANY-16164915

PATIENT

DRUGS (1)
  1. ENTECAVIR [Suspect]

REACTIONS (1)
  - NEPHRITIC SYNDROME [None]
